FAERS Safety Report 6795592-1 (Version None)
Quarter: 2010Q2

REPORT INFORMATION
  Report Type: 
  Country: None (occurrence: None)
  Receive Date: 20100520
  Receipt Date: 20090831
  Transmission Date: 20101027
  Serious: Yes (Other)
  Sender: FDA-Public Use
  Company Number: 2009262796

PATIENT
  Age: 60 Year
  Sex: Female
  Weight: 109 kg

DRUGS (9)
  1. PROVERA [Suspect]
     Indication: HORMONE REPLACEMENT THERAPY
     Dosage: ORAL
     Route: 048
     Dates: start: 19920101, end: 19960101
  2. PREMARIN [Suspect]
     Indication: HORMONE REPLACEMENT THERAPY
     Dates: start: 19920101, end: 19960101
  3. PROGESTERONE [Suspect]
     Indication: HORMONE REPLACEMENT THERAPY
     Dates: start: 19920101, end: 19960101
  4. PREMPRO [Suspect]
     Indication: HORMONE REPLACEMENT THERAPY
     Dates: start: 19960101, end: 20000101
  5. SYNTHROID [Concomitant]
  6. DIGOXIN [Concomitant]
  7. WARFARIN SODIUM [Concomitant]
  8. ZOCOR [Concomitant]
  9. VALSARTAN [Concomitant]

REACTIONS (1)
  - BREAST CANCER FEMALE [None]
